FAERS Safety Report 24145621 (Version 2)
Quarter: 2024Q3

REPORT INFORMATION
  Report Type: Spontaneous
  Country: SG (occurrence: SG)
  Receive Date: 20240729
  Receipt Date: 20240812
  Transmission Date: 20241017
  Serious: Yes (Death)
  Sender: ROCHE
  Company Number: SG-ROCHE-10000034659

PATIENT
  Age: 61 Year
  Sex: Female

DRUGS (1)
  1. HERCEPTIN [Suspect]
     Active Substance: TRASTUZUMAB
     Indication: Breast cancer
     Route: 058

REACTIONS (1)
  - Death [Fatal]

NARRATIVE: CASE EVENT DATE: 20220101
